FAERS Safety Report 23640920 (Version 1)
Quarter: 2024Q1

REPORT INFORMATION
  Report Type: Spontaneous
  Country: US (occurrence: US)
  Receive Date: 20240318
  Receipt Date: 20240318
  Transmission Date: 20240410
  Serious: No
  Sender: FDA-Public Use
  Company Number: US-PADAGIS-2024PAD00350

PATIENT

DRUGS (1)
  1. ESTRADIOL VAGINAL [Suspect]
     Active Substance: ESTRADIOL
     Indication: Vaginal disorder
     Dosage: 1 G
     Route: 065

REACTIONS (3)
  - Underdose [Unknown]
  - Product use issue [Unknown]
  - Product use in unapproved indication [Unknown]
